FAERS Safety Report 8647318 (Version 2)
Quarter: 2013Q1

REPORT INFORMATION
  Report Type: Spontaneous
  Country: FR (occurrence: None)
  Receive Date: 20120619
  Receipt Date: 20130122
  Transmission Date: 20140127
  Serious: Yes (Other)
  Sender: FDA-Public Use
  Company Number: HRA-CDB20120058

PATIENT
  Age: 39 Year
  Sex: Female

DRUGS (1)
  1. ULIPRISTAL ACETATE [Suspect]
     Indication: POST COITAL CONTRACEPTION
     Dates: start: 20120213, end: 20120213

REACTIONS (3)
  - Unintended pregnancy [None]
  - Maternal exposure during pregnancy [None]
  - Vomiting in pregnancy [None]
